FAERS Safety Report 19874332 (Version 1)
Quarter: 2021Q3

REPORT INFORMATION
  Report Type: Spontaneous
  Country: US (occurrence: US)
  Receive Date: 20210922
  Receipt Date: 20210922
  Transmission Date: 20211014
  Serious: No
  Sender: FDA-Public Use
  Company Number: US-SA-2021SA309004

PATIENT
  Sex: Male
  Weight: 56.24 kg

DRUGS (3)
  1. CLARITINE [Concomitant]
     Active Substance: LORATADINE
     Dosage: UNK
  2. XYZAL ALLERGY 24HR [Suspect]
     Active Substance: LEVOCETIRIZINE DIHYDROCHLORIDE
     Dosage: 0.5 DF
  3. ALLEGRA [Suspect]
     Active Substance: FEXOFENADINE HYDROCHLORIDE
     Dosage: UNK

REACTIONS (2)
  - Therapeutic response decreased [Unknown]
  - Dry mouth [Unknown]
